FAERS Safety Report 7686341-3 (Version None)
Quarter: 2011Q3

REPORT INFORMATION
  Report Type: 
  Country: None (occurrence: None)
  Receive Date: 20110816
  Receipt Date: 20110811
  Transmission Date: 20111222
  Serious: Yes (Other)
  Sender: FDA-Public Use
  Company Number: CA-GLAXOSMITHKLINE-A0940568A

PATIENT
  Sex: Male

DRUGS (4)
  1. CRESTOR [Concomitant]
     Indication: BLOOD CHOLESTEROL
  2. AVODART [Suspect]
     Indication: PROSTATOMEGALY
     Dosage: 1CAP IN THE MORNING
     Route: 065
  3. ALFUZOSIN HCL [Concomitant]
     Indication: CARDIAC DISORDER
  4. UNSPECIFIED MEDICATION [Concomitant]
     Indication: BLOOD DISORDER

REACTIONS (3)
  - VASCULAR INJURY [None]
  - VENOUS HAEMORRHAGE [None]
  - OEDEMA PERIPHERAL [None]
